FAERS Safety Report 6899215-2 (Version None)
Quarter: 2010Q3

REPORT INFORMATION
  Report Type: 
  Country: None (occurrence: None)
  Receive Date: 20100802
  Receipt Date: 20080123
  Transmission Date: 20110219
  Serious: No
  Sender: FDA-Public Use
  Company Number: US-PFIZER INC-2007094663

PATIENT
  Sex: Female
  Weight: 84.545 kg

DRUGS (15)
  1. LYRICA [Suspect]
     Indication: FIBROMYALGIA
     Dates: start: 20071107
  2. LEVOTHYROXINE SODIUM [Concomitant]
  3. CETIRIZINE HCL [Concomitant]
  4. ZETIA [Concomitant]
  5. PLAVIX [Concomitant]
  6. RANITIDINE HYDROCHLORIDE [Concomitant]
  7. HYOSCYAMINE [Concomitant]
  8. CYMBALTA [Concomitant]
  9. LOTREL [Concomitant]
  10. TOPROL-XL [Concomitant]
  11. ATORVASTATIN [Concomitant]
  12. IBANDRONATE SODIUM [Concomitant]
  13. VITAMINS [Concomitant]
  14. CALCIUM [Concomitant]
  15. ASPIRIN [Concomitant]

REACTIONS (1)
  - DRUG INEFFECTIVE [None]
